FAERS Safety Report 7440508-8 (Version None)
Quarter: 2011Q2

REPORT INFORMATION
  Report Type: 
  Country: None (occurrence: None)
  Receive Date: 20110427
  Receipt Date: 20110420
  Transmission Date: 20111010
  Serious: Yes (Hospitalization, Congenital Anomaly)
  Sender: FDA-Public Use
  Company Number: A0661737A

PATIENT
  Sex: Male
  Weight: 3.4 kg

DRUGS (9)
  1. RANITIDINE [Concomitant]
     Route: 064
     Dates: start: 20030901
  2. ALBUTEROL [Concomitant]
     Route: 064
     Dates: start: 20030901, end: 20040101
  3. PRENATAL VITAMINS [Concomitant]
     Route: 064
     Dates: start: 20030801
  4. APAP W/ CODEINE [Concomitant]
     Route: 064
     Dates: start: 20030801
  5. ZITHROMAX [Concomitant]
     Route: 064
     Dates: start: 20040101
  6. MICONAZOLE [Concomitant]
     Route: 064
     Dates: start: 20040201
  7. MONISTAT [Concomitant]
     Route: 064
     Dates: start: 20040301
  8. PAXIL CR [Suspect]
     Indication: DEPRESSION
     Dosage: 12.5MG TWICE PER DAY
     Route: 064
     Dates: start: 20030606, end: 20030901
  9. CEPHALEXIN [Concomitant]
     Route: 064
     Dates: start: 20030801

REACTIONS (33)
  - TRANSPOSITION OF THE GREAT VESSELS [None]
  - PULMONARY HYPERTENSION [None]
  - PHARYNGEAL INJURY [None]
  - OEDEMA PERIPHERAL [None]
  - RESPIRATION ABNORMAL [None]
  - DILATATION VENTRICULAR [None]
  - HEART VALVE INCOMPETENCE [None]
  - HYPERTENSION [None]
  - DENTAL CARIES [None]
  - CARDIAC FAILURE CONGESTIVE [None]
  - PERIPHERAL COLDNESS [None]
  - HYPOXIA [None]
  - HYPOTENSION [None]
  - DRUG EXPOSURE DURING PREGNANCY [None]
  - ATRIAL SEPTAL DEFECT [None]
  - FATIGUE [None]
  - PULMONARY VALVE STENOSIS [None]
  - FAILURE TO THRIVE [None]
  - AORTIC VALVE INCOMPETENCE [None]
  - RIGHT VENTRICLE OUTFLOW TRACT OBSTRUCTION [None]
  - CARDIOMEGALY [None]
  - RESPIRATORY FAILURE [None]
  - PATENT DUCTUS ARTERIOSUS [None]
  - GASTROOESOPHAGEAL REFLUX DISEASE [None]
  - RESPIRATORY DEPTH INCREASED [None]
  - CYANOSIS [None]
  - HYPERHIDROSIS [None]
  - TACHYPNOEA [None]
  - BRADYCARDIA [None]
  - LEFT VENTRICLE OUTFLOW TRACT OBSTRUCTION [None]
  - TOOTH INJURY [None]
  - DYSPNOEA [None]
  - SINUS TACHYCARDIA [None]
